FAERS Safety Report 8404952-4 (Version None)
Quarter: 2012Q2

REPORT INFORMATION
  Report Type: 
  Country: None (occurrence: None)
  Receive Date: 20120601
  Receipt Date: 20120523
  Transmission Date: 20120825
  Serious: Yes (Other)
  Sender: FDA-Public Use
  Company Number: IT-BAYER-2012-050626

PATIENT
  Age: 29 Year
  Sex: Male

DRUGS (1)
  1. ASPIRIN [Suspect]
     Indication: FLANK PAIN
     Dosage: 500 MG, ONCE
     Route: 048
     Dates: start: 20120313, end: 20120313

REACTIONS (1)
  - ANGIOEDEMA [None]
